FAERS Safety Report 4367785-4 (Version None)
Quarter: 2004Q2

REPORT INFORMATION
  Report Type: 
  Country: None (occurrence: None)
  Receive Date: 20040601
  Receipt Date: 20040519
  Transmission Date: 20050107
  Serious: Yes (Death, Hospitalization)
  Sender: FDA-Public Use
  Company Number: TR-MERCK-0405TUR00004

PATIENT
  Age: 41 Year
  Sex: Female

DRUGS (2)
  1. ALLOPURINOL [Suspect]
     Route: 065
  2. PRINIVIL [Suspect]
     Indication: HYPERTENSION
     Route: 065

REACTIONS (3)
  - CARDIAC DISORDER [None]
  - DRUG HYPERSENSITIVITY [None]
  - ELECTROLYTE IMBALANCE [None]
